FAERS Safety Report 12485559 (Version 1)
Quarter: 2016Q2

REPORT INFORMATION
  Report Type: Spontaneous
  Country: US (occurrence: US)
  Receive Date: 20160621
  Receipt Date: 20160621
  Transmission Date: 20160815
  Serious: Yes (Other)
  Sender: FDA-Public Use
  Company Number: US-MEDA-2016060058

PATIENT
  Sex: Male
  Weight: 52 kg

DRUGS (2)
  1. FELBAMATE. [Suspect]
     Active Substance: FELBAMATE
     Indication: SEIZURE
     Route: 048
  2. FELBATOL [Concomitant]
     Active Substance: FELBAMATE
     Indication: SEIZURE

REACTIONS (2)
  - Epilepsy [Recovered/Resolved]
  - Drug ineffective [Not Recovered/Not Resolved]
